FAERS Safety Report 8112585-2 (Version None)
Quarter: 2012Q1

REPORT INFORMATION
  Report Type: 
  Country: None (occurrence: None)
  Receive Date: 20120203
  Receipt Date: 20120131
  Transmission Date: 20120608
  Serious: Yes (Other)
  Sender: FDA-Public Use
  Company Number: RS-PFIZER INC-2012013627

PATIENT
  Age: 72 Year
  Sex: Female
  Weight: 66 kg

DRUGS (4)
  1. ENALAPRIL [Concomitant]
     Indication: HYPERTENSION
     Dosage: 10 MG, 2X/DAY, IN THE MORNING AND IN THE EVENING
     Route: 048
  2. PRESOLOL [Concomitant]
     Indication: HYPERTENSION
     Dosage: 100 MG, 2X/DAY, 1 TBL AT MORNING AND 1 TBL AT EVENING
     Route: 048
  3. NORVASC [Suspect]
     Indication: BLOOD PRESSURE INCREASED
     Dosage: 10 MG, 1X/DAY, IN THE EVENING
     Route: 048
     Dates: start: 20110101, end: 20111128
  4. ANDOL [Concomitant]
     Indication: THROMBOSIS PROPHYLAXIS
     Dosage: 100 MG, 1X/DAY, AT EVENING
     Route: 048

REACTIONS (1)
  - HAEMORRHAGE [None]
